FAERS Safety Report 23258004 (Version 1)
Quarter: 2023Q4

REPORT INFORMATION
  Report Type: Spontaneous
  Country: US (occurrence: US)
  Receive Date: 20231204
  Receipt Date: 20231204
  Transmission Date: 20240109
  Serious: Yes (Other)
  Sender: FDA-Public Use
  Company Number: US-ENDO-CASE-0048300

PATIENT
  Sex: Female

DRUGS (11)
  1. ACETAMINOPHEN\HYDROCODONE BITARTRATE [Suspect]
     Active Substance: ACETAMINOPHEN\HYDROCODONE BITARTRATE
  2. PERCOCET [Suspect]
     Active Substance: ACETAMINOPHEN\OXYCODONE HYDROCHLORIDE
  3. ACETAMINOPHEN\OXYCODONE HYDROCHLORIDE [Suspect]
     Active Substance: ACETAMINOPHEN\OXYCODONE HYDROCHLORIDE
  4. TRAMADOL HYDROCHLORIDE [Suspect]
     Active Substance: TRAMADOL HYDROCHLORIDE
  5. TRAMADOL HYDROCHLORIDE [Suspect]
     Active Substance: TRAMADOL HYDROCHLORIDE
  6. ACETAMINOPHEN AND CODEINE [Suspect]
     Active Substance: ACETAMINOPHEN\CODEINE PHOSPHATE
  7. CODEINE [Suspect]
     Active Substance: CODEINE
  8. VICODIN [Suspect]
     Active Substance: ACETAMINOPHEN\HYDROCODONE BITARTRATE
  9. VICOPROFEN [Suspect]
     Active Substance: HYDROCODONE BITARTRATE\IBUPROFEN
  10. CODEINE PHOSPHATE\GUAIFENESIN [Suspect]
     Active Substance: CODEINE PHOSPHATE\GUAIFENESIN
  11. TYLENOL [Suspect]
     Active Substance: ACETAMINOPHEN

REACTIONS (17)
  - Pain [Unknown]
  - Mobility decreased [Unknown]
  - Arthritis [Unknown]
  - Disturbance in attention [Unknown]
  - Intervertebral disc protrusion [Unknown]
  - Hypertension [Unknown]
  - Dyspnoea [Unknown]
  - Overdose [Unknown]
  - Dependence [Unknown]
  - Post-traumatic stress disorder [Unknown]
  - Confusional state [Unknown]
  - Panic attack [Unknown]
  - Arthropathy [Unknown]
  - Neoplasm malignant [Unknown]
  - Fracture [Unknown]
  - Fall [Unknown]
  - Weight increased [Unknown]
